FAERS Safety Report 4735138-2 (Version None)
Quarter: 2005Q3

REPORT INFORMATION
  Report Type: 
  Country: None (occurrence: None)
  Receive Date: 20050804
  Receipt Date: 20050713
  Transmission Date: 20060218
  Serious: Yes (Other)
  Sender: FDA-Public Use
  Company Number: USA0507102698

PATIENT
  Age: 75 Year
  Sex: Female

DRUGS (2)
  1. EVISTA [Suspect]
     Indication: OSTEOPOROSIS
     Dosage: 60 MG DAY
  2. ACTONEL [Concomitant]

REACTIONS (1)
  - SILENT MYOCARDIAL INFARCTION [None]
